FAERS Safety Report 8897285 (Version 1)
Quarter: 2012Q4

REPORT INFORMATION
  Report Type: Spontaneous
  Country: SA (occurrence: None)
  Receive Date: 20121105
  Receipt Date: 20121105
  Transmission Date: 20130627
  Serious: Yes (Other)
  Sender: FDA-Public Use
  Company Number: 2010EU005045

PATIENT
  Sex: Male
  Weight: 2.2 kg

DRUGS (7)
  1. TACROLIMUS [Suspect]
     Route: 064
  2. TACROLIMUS [Suspect]
     Route: 064
  3. TACROLIMUS [Suspect]
     Route: 064
  4. TACROLIMUS [Suspect]
     Route: 064
  5. PREDNISOLONE [Suspect]
     Route: 064
  6. PREDNISOLONE [Suspect]
     Route: 064
  7. PREDNISOLONE [Suspect]
     Route: 064

REACTIONS (3)
  - Premature baby [None]
  - Low birth weight baby [None]
  - Exposure during pregnancy [None]
